FAERS Safety Report 11823168 (Version 1)
Quarter: 2015Q4

REPORT INFORMATION
  Report Type: Spontaneous
  Country: US (occurrence: US)
  Receive Date: 20151210
  Receipt Date: 20151210
  Transmission Date: 20160305
  Serious: No
  Sender: FDA-Public Use
  Company Number: US-ENDO PHARMACEUTICALS INC.-2015-000167

PATIENT
  Sex: Male

DRUGS (1)
  1. ZOLPIDEM TARTRATE TABLETS 10MG [Suspect]
     Active Substance: ZOLPIDEM TARTRATE
     Indication: INSOMNIA
     Route: 065

REACTIONS (6)
  - Asthenia [Unknown]
  - Unevaluable event [Unknown]
  - Drug ineffective [Unknown]
  - Anxiety [Unknown]
  - Dizziness [Unknown]
  - Impaired driving ability [Unknown]

NARRATIVE: CASE EVENT DATE: 2015
